FAERS Safety Report 5197327-5 (Version None)
Quarter: 2006Q4

REPORT INFORMATION
  Report Type: 
  Country: None (occurrence: None)
  Receive Date: 20061228
  Receipt Date: 20061204
  Transmission Date: 20070319
  Serious: Yes (Death)
  Sender: FDA-Public Use
  Company Number: WAES 0612USA01585

PATIENT
  Age: 82 Year
  Sex: Male

DRUGS (7)
  1. STROMECTOL [Suspect]
     Indication: ACARODERMATITIS
     Dosage: 9 MG/DAILY PO
     Route: 048
     Dates: start: 20060830, end: 20060830
  2. EURAX [Concomitant]
  3. HABEKACIN [Concomitant]
  4. MUCODYNE [Concomitant]
  5. MG OXIDE [Concomitant]
  6. TINELAC [Concomitant]
  7. MICAFUNGIN SODIUM [Concomitant]

REACTIONS (1)
  - PNEUMONIA [None]
